FAERS Safety Report 4844910-X (Version None)
Quarter: 2005Q4

REPORT INFORMATION
  Report Type: 
  Country: None (occurrence: None)
  Receive Date: 20051128
  Receipt Date: 20051111
  Transmission Date: 20060501
  Serious: Yes (Death)
  Sender: FDA-Public Use
  Company Number: CLOF-10140

PATIENT
  Age: 67 Year
  Sex: Male

DRUGS (12)
  1. CLOFARABINE [Suspect]
     Indication: ACUTE MYELOID LEUKAEMIA
     Dosage: 66 MG QD X 5 IV
     Route: 042
     Dates: start: 20050725, end: 20050729
  2. FENTANYL [Concomitant]
  3. EPINEPHRINE [Concomitant]
  4. MAGENSIUM SULFATE [Concomitant]
  5. MERREM [Concomitant]
  6. SEVELAMER [Concomitant]
  7. LACTULOSE [Concomitant]
  8. VALACYCLOVIR HCL [Concomitant]
  9. HYDROCORTISONE [Concomitant]
  10. AMIODARONE [Concomitant]
  11. NOREPINEPHRINE [Concomitant]
  12. PHYTONADIONE [Concomitant]

REACTIONS (2)
  - INFECTION [None]
  - MULTI-ORGAN FAILURE [None]
